FAERS Safety Report 9863723 (Version 3)
Quarter: 2014Q2

REPORT INFORMATION
  Report Type: Spontaneous
  Country: JP (occurrence: JP)
  Receive Date: 20140203
  Receipt Date: 20140502
  Transmission Date: 20141212
  Serious: Yes (Other)
  Sender: FDA-Public Use
  Company Number: PHHY2013JP149130

PATIENT
  Age: 57 Year
  Sex: Female

DRUGS (4)
  1. GLIVEC [Suspect]
     Indication: GASTROINTESTINAL STROMAL TUMOUR
     Dosage: 400 MG, DAILY
     Route: 048
     Dates: start: 2003
  2. GLIVEC [Suspect]
     Dosage: 200 MG DAILY, 3 TIMES PER WEEK
     Route: 048
  3. GLIVEC [Suspect]
     Route: 048
  4. SPRYCEL//DASATINIB [Suspect]
     Dosage: 140 MG, DAILY
     Route: 048

REACTIONS (8)
  - Hypoglycaemia [Unknown]
  - Pancytopenia [Unknown]
  - Neutropenia [Unknown]
  - Metastases to peritoneum [Unknown]
  - Metastases to liver [Unknown]
  - Gastrointestinal stromal tumour [Unknown]
  - Malignant neoplasm progression [Unknown]
  - Oedema [Recovered/Resolved]
